FAERS Safety Report 5753184-7 (Version None)
Quarter: 2008Q2

REPORT INFORMATION
  Report Type: 
  Country: None (occurrence: None)
  Receive Date: 20080530
  Receipt Date: 20080515
  Transmission Date: 20081010
  Serious: Yes (Other)
  Sender: FDA-Public Use
  Company Number: JP-BRISTOL-MYERS SQUIBB COMPANY-14198709

PATIENT
  Age: 25 Year
  Sex: Female

DRUGS (5)
  1. ENDOXAN [Suspect]
     Indication: OVARIAN CANCER
     Dosage: FOR THREE COURSES.
     Route: 065
  2. IFOMIDE [Concomitant]
     Indication: OVARIAN CANCER
     Dosage: FOR THREE COURSES.
  3. VINCRISTINE SULFATE [Concomitant]
     Dosage: FOR THREE COURSES.
  4. DOXORUBICIN HCL [Concomitant]
     Dosage: FOR THREE COURSES.
  5. ETOPOSIDE [Concomitant]
     Dosage: FOR THREE COURSES.

REACTIONS (5)
  - BONE MARROW FAILURE [None]
  - CYSTITIS [None]
  - INTERSTITIAL LUNG DISEASE [None]
  - NAUSEA [None]
  - POLYARTHRITIS [None]
